FAERS Safety Report 14117813 (Version 2)
Quarter: 2017Q4

REPORT INFORMATION
  Report Type: Spontaneous
  Country: MX (occurrence: MX)
  Receive Date: 20171023
  Receipt Date: 20171107
  Transmission Date: 20180321
  Serious: Yes (Other)
  Sender: FDA-Public Use
  Company Number: MX-UCBSA-2017041953

PATIENT
  Sex: Female
  Weight: 58 kg

DRUGS (9)
  1. AMITRIPTYLINE [Concomitant]
     Active Substance: AMITRIPTYLINE
     Indication: PAIN
  2. LAMOTRIGINE. [Concomitant]
     Active Substance: LAMOTRIGINE
     Indication: PRODUCT USED FOR UNKNOWN INDICATION
     Dosage: 200 MG, 2X/DAY (BID)
  3. KEPPRA [Suspect]
     Active Substance: LEVETIRACETAM
     Dosage: THE LEVETIRACETAM DOSE REDUCED 250 MG EACH MONTH
     Route: 048
  4. MARIHUANA [Concomitant]
     Active Substance: CANNABIS SATIVA SUBSP. SATIVA FLOWERING TOP
     Indication: PRODUCT USED FOR UNKNOWN INDICATION
  5. FRISIUM [Concomitant]
     Active Substance: CLOBAZAM
     Indication: PRODUCT USED FOR UNKNOWN INDICATION
  6. TRILEPTAL [Concomitant]
     Active Substance: OXCARBAZEPINE
     Indication: SEDATION
  7. KEPPRA [Suspect]
     Active Substance: LEVETIRACETAM
     Dosage: 1 G, 2X/DAY (BID)
     Route: 048
  8. KEPPRA [Suspect]
     Active Substance: LEVETIRACETAM
     Indication: EPILEPSY
     Dosage: 1.5 G, 2X/DAY (BID)
     Route: 048
     Dates: start: 200607
  9. KEPPRA [Suspect]
     Active Substance: LEVETIRACETAM
     Dosage: 500 MG AND 1.0 G, 2X/DAY (BID)
     Route: 048

REACTIONS (6)
  - Pain [Unknown]
  - Irritability [Recovered/Resolved]
  - Intentional product misuse [Unknown]
  - Fatigue [Unknown]
  - Dural tear [Unknown]
  - Seizure [Unknown]
